FAERS Safety Report 16915836 (Version 1)
Quarter: 2019Q4

REPORT INFORMATION
  Report Type: Report from Study
  Country: CN (occurrence: CN)
  Receive Date: 20191014
  Receipt Date: 20191014
  Transmission Date: 20200122
  Serious: Yes (Other)
  Sender: FDA-Public Use
  Company Number: CN-ASTRAZENECA-2019SF43352

PATIENT
  Sex: Female
  Weight: 65 kg

DRUGS (3)
  1. BYETTA [Suspect]
     Active Substance: EXENATIDE
     Indication: DIABETES MELLITUS
     Route: 058
     Dates: end: 201909
  2. BYETTA [Suspect]
     Active Substance: EXENATIDE
     Indication: DIABETES MELLITUS
     Route: 058
     Dates: start: 20191008
  3. BYETTA [Suspect]
     Active Substance: EXENATIDE
     Indication: DIABETES MELLITUS
     Route: 058
     Dates: start: 20190816

REACTIONS (10)
  - Hypoglycaemia [Not Recovered/Not Resolved]
  - Poor quality sleep [Unknown]
  - Discomfort [Unknown]
  - Hypertension [Not Recovered/Not Resolved]
  - Gait disturbance [Not Recovered/Not Resolved]
  - Dizziness [Not Recovered/Not Resolved]
  - Vomiting [Recovering/Resolving]
  - Abdominal discomfort [Unknown]
  - Constipation [Not Recovered/Not Resolved]
  - Palpitations [Not Recovered/Not Resolved]
